FAERS Safety Report 8082087-0 (Version None)
Quarter: 2012Q1

REPORT INFORMATION
  Report Type: 
  Country: None (occurrence: None)
  Receive Date: 20120127
  Receipt Date: 20110225
  Transmission Date: 20120608
  Serious: No
  Sender: FDA-Public Use
  Company Number: US-ABBOTT-11P-163-0708065-00

PATIENT
  Sex: Female
  Weight: 59.02 kg

DRUGS (9)
  1. HUMIRA [Suspect]
     Indication: RHEUMATOID ARTHRITIS
     Dates: start: 20080101, end: 20100101
  2. ALLEGRA [Concomitant]
     Indication: HYPERSENSITIVITY
  3. HUMIRA [Suspect]
     Dates: start: 20100101, end: 20101226
  4. LEVOTHYROXINE SODIUM [Concomitant]
     Indication: HYPOTHYROIDISM
  5. CALCIUM [Concomitant]
     Indication: MINERAL SUPPLEMENTATION
  6. TIZANIDINE HCL [Concomitant]
     Indication: MUSCLE SPASMS
  7. FOLIC ACID [Concomitant]
     Indication: VITAMIN SUPPLEMENTATION
  8. CENTRUM [Concomitant]
     Indication: VITAMIN SUPPLEMENTATION
  9. SIMVASTATIN [Concomitant]
     Indication: BLOOD CHOLESTEROL INCREASED

REACTIONS (5)
  - PYREXIA [None]
  - GASTRIC INFECTION [None]
  - NAIL INFECTION [None]
  - UPPER RESPIRATORY TRACT INFECTION [None]
  - SKIN INFECTION [None]
